FAERS Safety Report 25858623 (Version 1)
Quarter: 2025Q3

REPORT INFORMATION
  Report Type: Spontaneous
  Country: US (occurrence: US)
  Receive Date: 20250929
  Receipt Date: 20250929
  Transmission Date: 20251021
  Serious: Yes (Other)
  Sender: STRIDES
  Company Number: US-STRIDES ARCOLAB LIMITED-2025SP002810

PATIENT
  Age: 75 Year
  Sex: Female

DRUGS (9)
  1. PREDNISONE [Suspect]
     Active Substance: PREDNISONE
     Indication: Cystoid macular oedema
     Route: 065
  2. PREDNISONE [Suspect]
     Active Substance: PREDNISONE
     Indication: Iritis
  3. PREDNISONE [Suspect]
     Active Substance: PREDNISONE
     Indication: Chorioretinitis
  4. KETOROLAC [Suspect]
     Active Substance: KETOROLAC TROMETHAMINE
     Indication: Cystoid macular oedema
     Route: 065
  5. KETOROLAC [Suspect]
     Active Substance: KETOROLAC TROMETHAMINE
     Indication: Chorioretinitis
  6. KETOROLAC [Suspect]
     Active Substance: KETOROLAC TROMETHAMINE
     Indication: Iritis
  7. DORZOLAMIDE [Suspect]
     Active Substance: DORZOLAMIDE
     Indication: Cystoid macular oedema
     Route: 065
  8. DORZOLAMIDE [Suspect]
     Active Substance: DORZOLAMIDE
     Indication: Iritis
  9. DORZOLAMIDE [Suspect]
     Active Substance: DORZOLAMIDE
     Indication: Chorioretinitis

REACTIONS (1)
  - Drug ineffective for unapproved indication [Unknown]
